FAERS Safety Report 8198304-2 (Version None)
Quarter: 2012Q1

REPORT INFORMATION
  Report Type: 
  Country: None (occurrence: None)
  Receive Date: 20120309
  Receipt Date: 20120301
  Transmission Date: 20120608
  Serious: Yes (Hospitalization)
  Sender: FDA-Public Use
  Company Number: JP-MERCK-1202USA02879

PATIENT
  Age: 78 Year
  Sex: Female
  Weight: 58 kg

DRUGS (5)
  1. NORVASC [Concomitant]
     Indication: HYPERTENSION
     Route: 048
     Dates: start: 20091021
  2. SHAKUYAKU-KANZO-TO [Suspect]
     Indication: MUSCLE SPASMS
     Route: 048
     Dates: start: 20110225, end: 20110402
  3. SHAKUYAKU-KANZO-TO [Suspect]
     Indication: MUSCULOSKELETAL STIFFNESS
     Route: 048
     Dates: start: 20110225, end: 20110402
  4. DEPAS [Concomitant]
     Indication: INSOMNIA
     Route: 048
     Dates: start: 20091021
  5. HYZAAR [Suspect]
     Indication: HYPERTENSION
     Route: 048
     Dates: start: 20091021, end: 20110404

REACTIONS (2)
  - BLOOD CREATINE PHOSPHOKINASE INCREASED [None]
  - HYPOKALAEMIA [None]
